FAERS Safety Report 10524090 (Version 1)
Quarter: 2014Q4

REPORT INFORMATION
  Report Type: Spontaneous
  Country: DE (occurrence: DE)
  Receive Date: 20141017
  Receipt Date: 20141017
  Transmission Date: 20150528
  Serious: Yes (Other)
  Sender: FDA-Public Use
  Company Number: DE-AUROBINDO-AUR-APL-2014-10933

PATIENT
  Sex: Male
  Weight: 80 kg

DRUGS (4)
  1. SIMVASTATIN 20MG [Suspect]
     Active Substance: SIMVASTATIN
     Dosage: 20 MG, UNK, USED WITH INTERRUPTIONS
     Route: 048
     Dates: start: 20131023, end: 20131031
  2. SIMVASTATIN 20MG [Suspect]
     Active Substance: SIMVASTATIN
     Indication: TYPE IIB HYPERLIPIDAEMIA
     Dosage: 20 MG, UNK, USED WITH INTERRUPTIONS
     Route: 048
     Dates: start: 20130924, end: 20130930
  3. ASPIRIN. [Concomitant]
     Active Substance: ASPIRIN
     Indication: PRODUCT USED FOR UNKNOWN INDICATION
     Dosage: 100 MG, UNK, BY MOUTH
     Route: 048
     Dates: start: 201309
  4. SIMVASTATIN 20MG [Suspect]
     Active Substance: SIMVASTATIN
     Dosage: 20 MG, UNK, USED WITH INTERRUPTIONS
     Route: 048
     Dates: start: 20131009, end: 20131016

REACTIONS (5)
  - Tubulointerstitial nephritis [Unknown]
  - Vertigo positional [Recovered/Resolved with Sequelae]
  - Hypoaesthesia [Recovered/Resolved with Sequelae]
  - Transient ischaemic attack [Recovered/Resolved with Sequelae]
  - Hemiparesis [Recovered/Resolved with Sequelae]

NARRATIVE: CASE EVENT DATE: 20130925
